FAERS Safety Report 8825289 (Version 1)
Quarter: 2012Q4

REPORT INFORMATION
  Report Type: 
  Country: US (occurrence: US)
  Receive Date: 20121004
  Receipt Date: 20121004
  Transmission Date: 20130627
  Serious: No
  Sender: FDA-Public Use
  Company Number: US-009507513-2012SP004258

PATIENT
  Sex: Female
  Weight: 40.82 kg

DRUGS (4)
  1. MIRALAX [Suspect]
     Indication: CONSTIPATION
     Dosage: 17 g, qd
     Route: 048
     Dates: start: 201101
  2. MIRALAX [Suspect]
     Indication: MEDICAL OBSERVATION
  3. POTASSIUM (UNSPECIFIED) [Concomitant]
     Indication: BLOOD POTASSIUM DECREASED
     Dosage: UNK, Unknown
  4. NEPHROCAPS [Concomitant]
     Indication: RENAL DISORDER
     Dosage: UNK, Unknown

REACTIONS (2)
  - Drug ineffective [Unknown]
  - Incorrect drug administration duration [Unknown]
